FAERS Safety Report 19243549 (Version 5)
Quarter: 2024Q1

REPORT INFORMATION
  Report Type: Spontaneous
  Country: US (occurrence: US)
  Receive Date: 20210511
  Receipt Date: 20240110
  Transmission Date: 20240410
  Serious: No
  Sender: FDA-Public Use
  Company Number: US-PFIZER INC-2021481044

PATIENT
  Age: 59 Year
  Sex: Male

DRUGS (9)
  1. XELJANZ XR [Suspect]
     Active Substance: TOFACITINIB CITRATE
     Dosage: 11 MG, DAILY
     Route: 048
     Dates: start: 20200901
  2. MUPIROCIN [Concomitant]
     Active Substance: MUPIROCIN
     Dosage: UNK
  3. PANTOPRAZOLE [Concomitant]
     Active Substance: PANTOPRAZOLE
  4. CALCITRIOL [Concomitant]
     Active Substance: CALCITRIOL
  5. POTASSIUM CITRATE [Concomitant]
     Active Substance: POTASSIUM CITRATE
  6. METHYLPREDNISOLONE [Concomitant]
     Active Substance: METHYLPREDNISOLONE
  7. COENZYME Q10 [Concomitant]
     Active Substance: DIETARY SUPPLEMENT\UBIDECARENONE
  8. TYLENOL [Concomitant]
     Active Substance: ACETAMINOPHEN
  9. VITAMIN D3 [Concomitant]
     Active Substance: CHOLECALCIFEROL

REACTIONS (5)
  - Peripheral swelling [Unknown]
  - Drug ineffective [Unknown]
  - Illness [Unknown]
  - Infection [Recovered/Resolved]
  - Product dose omission issue [Unknown]

NARRATIVE: CASE EVENT DATE: 20231201
